FAERS Safety Report 10026353 (Version 2)
Quarter: 2014Q1

REPORT INFORMATION
  Report Type: Spontaneous
  Country: US (occurrence: US)
  Receive Date: 20140321
  Receipt Date: 20140321
  Transmission Date: 20141002
  Serious: No
  Sender: FDA-Public Use
  Company Number: US-ALLERGAN-1309109US

PATIENT
  Age: 61 Year
  Sex: Female

DRUGS (9)
  1. LUMIGAN [Suspect]
     Indication: GLAUCOMA
     Dosage: 2 GTT, QHS
     Route: 047
     Dates: end: 20130618
  2. XANAX [Concomitant]
     Indication: ANXIETY DISORDER
     Dosage: 0.25 MG, TID
     Route: 048
  3. OMEPRAZOLE [Concomitant]
     Indication: GASTROOESOPHAGEAL REFLUX DISEASE
     Dosage: 10 MG, UNK
     Route: 048
  4. CALTRATE                           /00944201/ [Concomitant]
     Indication: PRODUCT USED FOR UNKNOWN INDICATION
  5. PROBIOTIC NOS [Concomitant]
     Indication: PRODUCT USED FOR UNKNOWN INDICATION
  6. PREMARIN [Concomitant]
     Indication: PRODUCT USED FOR UNKNOWN INDICATION
     Dosage: UNK UNK, BI-WEEKLY
     Route: 067
  7. SIMVASTATIN [Concomitant]
     Indication: BLOOD CHOLESTEROL INCREASED
     Dosage: 20 MG, UNK
     Route: 048
  8. GENERIC LOTREL [Concomitant]
     Indication: HYPERTENSION
     Route: 048
  9. REFRESH PLUS [Concomitant]
     Indication: DRY EYE

REACTIONS (1)
  - Eye pruritus [Recovered/Resolved]
